FAERS Safety Report 9490199 (Version 2)
Quarter: 2013Q3

REPORT INFORMATION
  Report Type: Spontaneous
  Country: PT (occurrence: PT)
  Receive Date: 20130830
  Receipt Date: 20130926
  Transmission Date: 20140515
  Serious: Yes (Hospitalization)
  Sender: FDA-Public Use
  Company Number: PT-BIOGENIDEC-2013BI082698

PATIENT
  Sex: Female

DRUGS (1)
  1. AVONEX [Suspect]
     Indication: MULTIPLE SCLEROSIS
     Route: 030
     Dates: start: 2012, end: 2012

REACTIONS (5)
  - Drug ineffective [Unknown]
  - Hypokalaemia [Unknown]
  - Arrhythmia [Unknown]
  - Influenza like illness [Unknown]
  - Injection site pain [Unknown]
